FAERS Safety Report 4427189-2 (Version None)
Quarter: 2004Q3

REPORT INFORMATION
  Report Type: 
  Country: None (occurrence: None)
  Receive Date: 20040726
  Receipt Date: 20040503
  Transmission Date: 20050211
  Serious: Yes (Hospitalization)
  Sender: FDA-Public Use
  Company Number: US_010464125

PATIENT
  Age: 65 Year
  Sex: Female
  Weight: 48 kg

DRUGS (10)
  1. HUMALOG [Suspect]
     Indication: DIABETES MELLITUS
  2. GLUCAGON [Suspect]
  3. ASPIRIN [Concomitant]
  4. FOSAMAX [Concomitant]
  5. HUMULIN-HUMAN INSULIN (UNKNOWN FORMULATION (HU [Suspect]
     Indication: DIABETES MELLITUS
  6. HUMULIN N [Suspect]
     Indication: DIABETES MELLITUS
     Dosage: 12 U/DAY
  7. HUMULIN R [Suspect]
     Indication: DIABETES MELLITUS
     Dosage: 3 U/IN THE MORNING
  8. FORTEO [Suspect]
     Indication: HIP FRACTURE
     Dates: start: 20030301, end: 20030511
  9. MULTI-VITAMIN [Concomitant]
  10. PREMPRO [Concomitant]

REACTIONS (5)
  - BLOOD GLUCOSE DECREASED [None]
  - FALL [None]
  - HYPOAESTHESIA [None]
  - HYPOGLYCAEMIA UNAWARENESS [None]
  - NEUROPATHY [None]
